FAERS Safety Report 6686583-X (Version None)
Quarter: 2010Q2

REPORT INFORMATION
  Report Type: 
  Country: None (occurrence: None)
  Receive Date: 20100419
  Receipt Date: 20100415
  Transmission Date: 20101027
  Serious: Yes (Hospitalization)
  Sender: FDA-Public Use
  Company Number: SE-ROCHE-697503

PATIENT
  Age: 53 Year
  Sex: Female

DRUGS (1)
  1. ROACTEMRA [Suspect]
     Indication: RHEUMATOID ARTHRITIS
     Dosage: DRUG NAME: ROACTEMRA CONCENTRATION FOR SOLUTION FOR INFUSION 20 MG/ML
     Route: 042
     Dates: start: 20100330, end: 20100401

REACTIONS (2)
  - ASTHMA [None]
  - RASH ERYTHEMATOUS [None]
